FAERS Safety Report 16413564 (Version 4)
Quarter: 2024Q4

REPORT INFORMATION
  Report Type: Report from Study
  Country: US (occurrence: US)
  Receive Date: 20190611
  Receipt Date: 20241126
  Transmission Date: 20250115
  Serious: Yes (Hospitalization, Other)
  Sender: ROCHE
  Company Number: US-ROCHE-2145441

PATIENT
  Age: 61 Year
  Sex: Female
  Weight: 77.11 kg

DRUGS (3)
  1. OCREVUS [Suspect]
     Active Substance: OCRELIZUMAB
     Indication: Relapsing multiple sclerosis
     Route: 065
     Dates: start: 20171128
  2. OCREVUS [Suspect]
     Active Substance: OCRELIZUMAB
     Route: 065
     Dates: start: 20190530
  3. ARMODAFINIL [Concomitant]
     Active Substance: ARMODAFINIL
     Indication: Fatigue
     Route: 048
     Dates: start: 201504

REACTIONS (27)
  - Neuropathy peripheral [Unknown]
  - Pain in extremity [Unknown]
  - Paraesthesia [Unknown]
  - Muscular weakness [Unknown]
  - Oropharyngeal pain [Unknown]
  - Cough [Unknown]
  - Multiple sclerosis [Not Recovered/Not Resolved]
  - Stress [Not Recovered/Not Resolved]
  - Pyrexia [Not Recovered/Not Resolved]
  - Rash [Not Recovered/Not Resolved]
  - Herpes virus infection [Not Recovered/Not Resolved]
  - Herpes zoster [Unknown]
  - Weight increased [Unknown]
  - Burning sensation [Unknown]
  - Fatigue [Unknown]
  - Nephrolithiasis [Not Recovered/Not Resolved]
  - Blood pressure decreased [Recovered/Resolved]
  - COVID-19 [Unknown]
  - Dizziness [Recovered/Resolved]
  - Vomiting [Recovered/Resolved]
  - Gait inability [Recovered/Resolved]
  - Mental impairment [Recovered/Resolved]
  - Renal disorder [Unknown]
  - Chest pain [Recovered/Resolved]
  - Renal pain [Recovered/Resolved]
  - Oxygen therapy [Recovered/Resolved]
  - Neuropathy peripheral [Recovered/Resolved]

NARRATIVE: CASE EVENT DATE: 20180101
